FAERS Safety Report 20982872 (Version 1)
Quarter: 2022Q2

REPORT INFORMATION
  Report Type: Spontaneous
  Country: US (occurrence: US)
  Receive Date: 20220620
  Receipt Date: 20220620
  Transmission Date: 20220721
  Serious: Yes (Hospitalization, Other)
  Sender: FDA-Public Use
  Company Number: US-BEXIMCO-2022BEX00040

PATIENT
  Age: 37 Year
  Sex: Male

DRUGS (2)
  1. BACLOFEN [Suspect]
     Active Substance: BACLOFEN
     Indication: Pain
     Route: 037
  2. UNSPECIFIED GENERAL ANESTHESIA [Concomitant]
     Indication: Anaesthesia
     Route: 065

REACTIONS (6)
  - Toxicity to various agents [Recovered/Resolved]
  - Overdose [Recovered/Resolved]
  - Generalised tonic-clonic seizure [Recovered/Resolved]
  - Pupil fixed [Recovered/Resolved]
  - Hypotension [Recovered/Resolved]
  - Bradycardia [Recovered/Resolved]
